FAERS Safety Report 5651062-5 (Version None)
Quarter: 2008Q1

REPORT INFORMATION
  Report Type: 
  Country: None (occurrence: None)
  Receive Date: 20080305
  Receipt Date: 20080228
  Transmission Date: 20080703
  Serious: Yes (Hospitalization)
  Sender: FDA-Public Use
  Company Number: B0506787B

PATIENT
  Age: 46 Year
  Sex: Female

DRUGS (6)
  1. LAPATINIB [Suspect]
     Indication: BREAST CANCER METASTATIC
     Dosage: 1250MG PER DAY
     Route: 048
     Dates: start: 20071018, end: 20080218
  2. CAPECITABINE [Suspect]
     Indication: BREAST CANCER METASTATIC
     Dosage: 1350MG TWICE PER DAY
     Route: 048
     Dates: start: 20071018, end: 20080218
  3. DEXAMETHASONE TAB [Concomitant]
     Indication: DRUG USE FOR UNKNOWN INDICATION
     Dosage: 4MG TWICE PER DAY
     Route: 048
     Dates: start: 20070911
  4. MST [Concomitant]
     Indication: PAIN
     Dosage: 20MG PER DAY
     Route: 048
  5. MST [Concomitant]
     Dosage: 30MG AT NIGHT
     Route: 048
  6. TEMAZEPAM [Concomitant]
     Indication: INSOMNIA
     Dosage: 20MG AT NIGHT
     Route: 048

REACTIONS (3)
  - BALANCE DISORDER [None]
  - DISEASE PROGRESSION [None]
  - FALL [None]
